FAERS Safety Report 15959369 (Version 20)
Quarter: 2022Q4

REPORT INFORMATION
  Report Type: Other
  Country: DE (occurrence: DE)
  Receive Date: 20190214
  Receipt Date: 20221230
  Transmission Date: 20230112
  Serious: Yes (Hospitalization, Other)
  Sender: FDA-Public Use
  Company Number: DE-ROCHE-2176591

PATIENT
  Age: 49 Year
  Sex: Female
  Weight: 78 kg

DRUGS (26)
  1. OCREVUS [Suspect]
     Active Substance: OCRELIZUMAB
     Indication: Relapsing-remitting multiple sclerosis
     Route: 042
     Dates: start: 20180822
  2. OCREVUS [Suspect]
     Active Substance: OCRELIZUMAB
     Route: 042
     Dates: start: 20190220
  3. OCREVUS [Suspect]
     Active Substance: OCRELIZUMAB
     Route: 042
     Dates: start: 20200813
  4. OCREVUS [Suspect]
     Active Substance: OCRELIZUMAB
     Route: 042
     Dates: start: 20180808
  5. OCREVUS [Suspect]
     Active Substance: OCRELIZUMAB
     Dosage: 5TH MAINTENANCE DOSE
     Route: 042
     Dates: start: 20210623
  6. OCREVUS [Suspect]
     Active Substance: OCRELIZUMAB
     Route: 042
     Dates: start: 20180808
  7. METFORMIN [Suspect]
     Active Substance: METFORMIN HYDROCHLORIDE
     Indication: Product used for unknown indication
     Route: 065
     Dates: end: 20190422
  8. METFORMIN [Suspect]
     Active Substance: METFORMIN HYDROCHLORIDE
     Route: 065
     Dates: start: 20190423
  9. ATORVASTATIN [Suspect]
     Active Substance: ATORVASTATIN
     Indication: Blood cholesterol increased
     Route: 065
     Dates: end: 20190530
  10. PANTOPRAZOLE [Concomitant]
     Active Substance: PANTOPRAZOLE
     Dosage: EVERY 2-3 DAYS
     Dates: start: 2011
  11. PANTOPRAZOLE [Concomitant]
     Active Substance: PANTOPRAZOLE
  12. LEVETIRACETAM [Concomitant]
     Active Substance: LEVETIRACETAM
     Indication: Epilepsy
     Dates: start: 2017
  13. FLUTICASONE PROPIONATE\SALMETEROL XINAFOATE [Concomitant]
     Active Substance: FLUTICASONE PROPIONATE\SALMETEROL XINAFOATE
     Indication: Asthma
  14. FLUTICASONE PROPIONATE\SALMETEROL XINAFOATE [Concomitant]
     Active Substance: FLUTICASONE PROPIONATE\SALMETEROL XINAFOATE
     Dates: start: 2011
  15. SODIUM CHLORIDE [Concomitant]
     Active Substance: SODIUM CHLORIDE
  16. IBUPROFEN [Concomitant]
     Active Substance: IBUPROFEN
     Dosage: AS REQUIRED
  17. IBUPROFEN [Concomitant]
     Active Substance: IBUPROFEN
     Dosage: (1-0-0-1)
  18. ROSUVASTATIN [Concomitant]
     Active Substance: ROSUVASTATIN
  19. OXCARBAZEPINE [Concomitant]
     Active Substance: OXCARBAZEPINE
  20. OXCARBAZEPINE [Concomitant]
     Active Substance: OXCARBAZEPINE
     Dates: start: 20180724
  21. SIMVASTATIN [Concomitant]
     Active Substance: SIMVASTATIN
     Dates: start: 20190823
  22. LEVOTHYROXINE SODIUM\POTASSIUM IODIDE [Concomitant]
     Active Substance: LEVOTHYROXINE SODIUM\POTASSIUM IODIDE
     Indication: Hypothyroidism
     Dates: start: 2011
  23. LEVOTHYROXINE SODIUM\POTASSIUM IODIDE [Concomitant]
     Active Substance: LEVOTHYROXINE SODIUM\POTASSIUM IODIDE
  24. DOXYCYCLINE [Concomitant]
     Active Substance: DOXYCYCLINE
     Dosage: 100 (1-0-1)
  25. CLEMASTINE [Concomitant]
     Active Substance: CLEMASTINE
     Indication: Premedication
  26. ALBUTEROL [Concomitant]
     Active Substance: ALBUTEROL

REACTIONS (41)
  - Intervertebral disc protrusion [Recovering/Resolving]
  - Lyme disease [Not Recovered/Not Resolved]
  - Asthenia [Recovered/Resolved]
  - Basal cell carcinoma [Recovered/Resolved]
  - Bronchitis [Recovered/Resolved]
  - Herpes zoster [Recovered/Resolved]
  - Injection site swelling [Recovered/Resolved]
  - Nasopharyngitis [Recovering/Resolving]
  - Arthralgia [Recovered/Resolved]
  - Cardiovascular disorder [Recovered/Resolved]
  - Urticaria [Recovered/Resolved]
  - Interleukin level increased [Unknown]
  - Fatigue [Recovered/Resolved]
  - Fall [Unknown]
  - Lumbar vertebral fracture [Recovered/Resolved]
  - Aortic disorder [Recovered/Resolved]
  - Muscular weakness [Recovered/Resolved]
  - Sensory disturbance [Not Recovered/Not Resolved]
  - Chills [Recovered/Resolved]
  - Illness [Not Recovered/Not Resolved]
  - Blood glucose increased [Recovered/Resolved]
  - Depressed mood [Not Recovered/Not Resolved]
  - Pain in extremity [Recovered/Resolved]
  - Granuloma annulare [Not Recovered/Not Resolved]
  - Uhthoff^s phenomenon [Not Recovered/Not Resolved]
  - Blood cholesterol increased [Recovered/Resolved]
  - Haematoma [Recovered/Resolved]
  - Epistaxis [Recovered/Resolved]
  - Paraesthesia [Not Recovered/Not Resolved]
  - Myalgia [Recovered/Resolved]
  - Product administration error [Unknown]
  - Headache [Unknown]
  - Hyperhidrosis [Recovered/Resolved]
  - Fatigue [Recovered/Resolved]
  - Paraesthesia [Not Recovered/Not Resolved]
  - B-lymphocyte count decreased [Recovered/Resolved]
  - Lymph node pain [Recovered/Resolved]
  - Type 2 diabetes mellitus [Unknown]
  - Diarrhoea [Recovered/Resolved]
  - Pelvic pain [Recovered/Resolved]
  - Vaginal infection [Recovered/Resolved]

NARRATIVE: CASE EVENT DATE: 20180822
